FAERS Safety Report 4561929-7 (Version None)
Quarter: 2005Q1

REPORT INFORMATION
  Report Type: 
  Country: None (occurrence: None)
  Receive Date: 20050125
  Receipt Date: 20050114
  Transmission Date: 20050727
  Serious: Yes (Death, Life-Threatening, Hospitalization, Other)
  Sender: FDA-Public Use
  Company Number: KII-2005-0014671

PATIENT
  Age: 40 Year
  Sex: Female

DRUGS (7)
  1. OXYCONTIN [Suspect]
     Indication: DRUG USE FOR UNKNOWN INDICATION
     Dosage: ORAL
     Route: 048
  2. VALPROIC ACID [Suspect]
     Indication: DRUG USE FOR UNKNOWN INDICATION
     Dosage: ORAL
     Route: 048
  3. BUSPIRONE HCL [Suspect]
     Indication: DRUG USE FOR UNKNOWN INDICATION
     Dosage: ORAL
     Route: 048
  4. AMITRIPTYLINE HCL [Suspect]
     Indication: DRUG USE FOR UNKNOWN INDICATION
     Dosage: ORAL
     Route: 048
  5. BENZODIAZEPINE DERIVATIVES() [Suspect]
     Indication: DRUG USE FOR UNKNOWN INDICATION
     Dosage: ORAL
     Route: 048
  6. CARISOPRODOL [Suspect]
     Indication: DRUG USE FOR UNKNOWN INDICATION
     Dosage: ORAL
     Route: 048
  7. CIMETADINE AND OTHER H2 BLOCKERS() [Suspect]
     Indication: DRUG USE FOR UNKNOWN INDICATION
     Dosage: ORAL
     Route: 048

REACTIONS (41)
  - ACIDOSIS [None]
  - ALANINE AMINOTRANSFERASE INCREASED [None]
  - AMMONIA INCREASED [None]
  - ANTICONVULSANT DRUG LEVEL BELOW THERAPEUTIC [None]
  - AREFLEXIA [None]
  - ASPARTATE AMINOTRANSFERASE INCREASED [None]
  - ATRIAL FIBRILLATION [None]
  - BLOOD BICARBONATE INCREASED [None]
  - BLOOD CALCIUM DECREASED [None]
  - BLOOD CHLORIDE INCREASED [None]
  - BLOOD CREATINE PHOSPHOKINASE INCREASED [None]
  - BLOOD CREATININE INCREASED [None]
  - BLOOD LACTIC ACID DECREASED [None]
  - BLOOD PH DECREASED [None]
  - BLOOD POTASSIUM DECREASED [None]
  - BLOOD POTASSIUM INCREASED [None]
  - BLOOD PRESSURE INCREASED [None]
  - BRAIN DEATH [None]
  - CARDIAC ARREST [None]
  - CEREBRAL INFARCTION [None]
  - COMA [None]
  - COUGH [None]
  - DECEREBRATION [None]
  - INFECTION [None]
  - MULTIPLE DRUG OVERDOSE [None]
  - MYDRIASIS [None]
  - OVERDOSE [None]
  - OXYGEN SATURATION DECREASED [None]
  - PCO2 INCREASED [None]
  - POSTURING [None]
  - PUPIL FIXED [None]
  - PUPILLARY REFLEX IMPAIRED [None]
  - PYREXIA [None]
  - SELF INJURIOUS BEHAVIOUR [None]
  - SINUS TACHYCARDIA [None]
  - SLUGGISHNESS [None]
  - STAPHYLOCOCCAL BACTERAEMIA [None]
  - TACHYCARDIA [None]
  - THERAPY NON-RESPONDER [None]
  - THERMAL BURN [None]
  - TOXICOLOGIC TEST ABNORMAL [None]
